FAERS Safety Report 6173907-5 (Version None)
Quarter: 2009Q2

REPORT INFORMATION
  Report Type: 
  Country: None (occurrence: None)
  Receive Date: 20090430
  Receipt Date: 20090424
  Transmission Date: 20091009
  Serious: Yes (Congenital Anomaly)
  Sender: FDA-Public Use
  Company Number: FR-WYE-G03562509

PATIENT
  Sex: Male

DRUGS (6)
  1. EFFEXOR [Suspect]
     Indication: DEPRESSION
     Dosage: 75 MG TOTAL DAILY
     Route: 064
     Dates: end: 20080101
  2. EFFEXOR [Suspect]
     Route: 064
     Dates: start: 20080101
  3. ASPIRIN [Suspect]
     Indication: HYPERTENSION
     Route: 064
     Dates: end: 20080801
  4. LEVOTHYROX [Suspect]
     Indication: THYROID NEOPLASM
     Route: 064
  5. TRANDATE [Suspect]
     Indication: HYPERTENSION
     Route: 064
     Dates: end: 20080101
  6. TRANDATE [Suspect]
     Route: 064
     Dates: start: 20080101

REACTIONS (3)
  - COARCTATION OF THE AORTA [None]
  - DRUG EXPOSURE DURING PREGNANCY [None]
  - DRUG EXPOSURE VIA BREAST MILK [None]
